FAERS Safety Report 10270082 (Version 2)
Quarter: 2014Q3

REPORT INFORMATION
  Report Type: Spontaneous
  Country: US (occurrence: US)
  Receive Date: 20140701
  Receipt Date: 20140728
  Transmission Date: 20150326
  Serious: No
  Sender: FDA-Public Use
  Company Number: US-TEVA-491371USA

PATIENT
  Age: 63 Year
  Sex: Female

DRUGS (1)
  1. COPAXONE [Suspect]
     Active Substance: GLATIRAMER ACETATE
     Indication: MULTIPLE SCLEROSIS
     Dates: start: 2014, end: 20140614

REACTIONS (7)
  - Throat tightness [Unknown]
  - Dizziness [Unknown]
  - Dysphagia [Unknown]
  - Gait disturbance [Unknown]
  - Flushing [Unknown]
  - Tremor [Unknown]
  - Injection site swelling [Unknown]

NARRATIVE: CASE EVENT DATE: 201406
